FAERS Safety Report 19942826 (Version 1)
Quarter: 2021Q4

REPORT INFORMATION
  Report Type: Spontaneous
  Country: US (occurrence: US)
  Receive Date: 20211012
  Receipt Date: 20211012
  Transmission Date: 20220303
  Serious: No
  Sender: FDA-Public Use
  Company Number: US-C B FLEET CO INC-202101-US-000375

PATIENT
  Sex: Female

DRUGS (1)
  1. MONISTAT 7 COMBINATION PACK [Suspect]
     Active Substance: MICONAZOLE NITRATE
     Indication: Fungal infection
     Dosage: ONE DOSE VAGINALLY FOR SEVEN DAYS
     Route: 067
     Dates: start: 20210108, end: 20210114

REACTIONS (1)
  - Skin discolouration [Not Recovered/Not Resolved]

NARRATIVE: CASE EVENT DATE: 20210125
